FAERS Safety Report 25543671 (Version 1)
Quarter: 2025Q3

REPORT INFORMATION
  Report Type: Spontaneous
  Country: US (occurrence: US)
  Receive Date: 20250711
  Receipt Date: 20250711
  Transmission Date: 20251020
  Serious: No
  Sender: BAYER HEALTHCARE LLC
  Company Number: US-BAYER-2025A090876

PATIENT
  Sex: Female

DRUGS (1)
  1. LOTRIMIN ULTRA ATHLETES FOOT [Suspect]
     Active Substance: BUTENAFINE HYDROCHLORIDE
     Indication: Onychomycosis
     Dosage: UNK, BID, ON MY RIGHT FOOT
     Route: 061
     Dates: start: 2024

REACTIONS (3)
  - Product use issue [Not Recovered/Not Resolved]
  - Drug effective for unapproved indication [None]
  - Inappropriate schedule of product administration [None]
